FAERS Safety Report 7296068-8 (Version None)
Quarter: 2011Q1

REPORT INFORMATION
  Report Type: 
  Country: None (occurrence: None)
  Receive Date: 20110216
  Receipt Date: 20101201
  Transmission Date: 20110831
  Serious: No
  Sender: FDA-Public Use
  Company Number: US-ABBOTT-10P-163-0688699-00

PATIENT
  Sex: Female

DRUGS (1)
  1. SIMCOR [Suspect]
     Indication: PRODUCT USED FOR UNKNOWN INDICATION
     Dates: start: 20101130, end: 20101201

REACTIONS (5)
  - ERYTHEMA [None]
  - RASH MACULAR [None]
  - PARAESTHESIA [None]
  - FLUSHING [None]
  - PRURITUS [None]
